FAERS Safety Report 5122944-8 (Version None)
Quarter: 2006Q4

REPORT INFORMATION
  Report Type: 
  Country: None (occurrence: None)
  Receive Date: 20061005
  Receipt Date: 20060922
  Transmission Date: 20070319
  Serious: Yes (Death, Hospitalization)
  Sender: FDA-Public Use
  Company Number: 2006118435

PATIENT

DRUGS (2)
  1. CELEBREX [Suspect]
     Dates: start: 19991117, end: 20000307
  2. VIOXX [Suspect]
     Dates: start: 19990701, end: 20000326

REACTIONS (3)
  - DEEP VEIN THROMBOSIS [None]
  - MYOCARDIAL INFARCTION [None]
  - PULMONARY EMBOLISM [None]
